FAERS Safety Report 8445556-7 (Version None)
Quarter: 2012Q2

REPORT INFORMATION
  Report Type: 
  Country: None (occurrence: None)
  Receive Date: 20120323
  Receipt Date: 20111028
  Transmission Date: 20120825
  Serious: Yes (Other)
  Sender: FDA-Public Use
  Company Number: 163-21880-11110144

PATIENT
  Age: 65 Year
  Sex: Female

DRUGS (6)
  1. LENALIDOMIDE [Suspect]
     Indication: MULTIPLE MYELOMA
     Dosage: 25 MG, X 14 CAPS, PO
     Route: 048
     Dates: start: 20110811
  2. SIMVASTATIN [Concomitant]
  3. BAYER ASPIRIN EC LOW DOSE (ACETYLSALICYLIC ACID) [Concomitant]
  4. LOVENOX [Concomitant]
  5. WOMENS ONE DAILY (VITAMINS) [Suspect]
  6. LISINOPRIL [Concomitant]

REACTIONS (1)
  - DEEP VEIN THROMBOSIS [None]
